FAERS Safety Report 8645008 (Version 2)
Quarter: 2012Q4

REPORT INFORMATION
  Report Type: Spontaneous
  Country: MX (occurrence: None)
  Receive Date: 20120619
  Receipt Date: 20120824
  Transmission Date: 20130627
  Serious: Yes (Death, Other)
  Sender: FDA-Public Use
  Company Number: ENTC2012-0163

PATIENT
  Age: 64 Year
  Sex: Female

DRUGS (3)
  1. STALEVO [Suspect]
     Indication: PARKINSON^S DISEASE
     Dosage: 2 TABLETS (150/37.5/200 MG) PER DAY, ORAL
     Route: 048
     Dates: start: 201201, end: 20120624
  2. LYRICA [Concomitant]
  3. TAFIL [Concomitant]

REACTIONS (8)
  - Speech disorder [None]
  - Trismus [None]
  - Cardio-respiratory arrest [None]
  - Fatigue [None]
  - Parkinson^s disease [None]
  - Pneumonia [None]
  - Dysphagia [None]
  - Disease progression [None]
